FAERS Safety Report 23529226 (Version 1)
Quarter: 2024Q1

REPORT INFORMATION
  Report Type: Report from Study
  Country: ES (occurrence: ES)
  Receive Date: 20240216
  Receipt Date: 20240216
  Transmission Date: 20240410
  Serious: Yes (Other)
  Sender: FDA-Public Use
  Company Number: None

PATIENT
  Age: 90 Year
  Sex: Female

DRUGS (6)
  1. ATROPINE SULFATE [Suspect]
     Active Substance: ATROPINE SULFATE
     Indication: Atrioventricular block complete
     Dates: start: 20230912, end: 20230912
  2. PANTOPRAZOLE SODIUM [Concomitant]
     Active Substance: PANTOPRAZOLE SODIUM
     Dates: start: 200902
  3. CITALOPRAM [Concomitant]
     Active Substance: CITALOPRAM HYDROBROMIDE
     Dates: start: 20230722
  4. FUROSEMIDE [Concomitant]
     Active Substance: FUROSEMIDE
     Dates: start: 20230213
  5. ENALAPRIL MALEATE\NITRENDIPINE [Concomitant]
     Active Substance: ENALAPRIL MALEATE\NITRENDIPINE
     Indication: Hypertension
     Dates: start: 200601, end: 20230912
  6. DIAZEPAM [Concomitant]
     Active Substance: DIAZEPAM
     Dates: start: 201507, end: 20230912

REACTIONS (1)
  - Depressed level of consciousness [Recovered/Resolved]

NARRATIVE: CASE EVENT DATE: 20230912
